FAERS Safety Report 18535441 (Version 2)
Quarter: 2020Q4

REPORT INFORMATION
  Report Type: Report from Study
  Country: US (occurrence: US)
  Receive Date: 20201123
  Receipt Date: 20201207
  Transmission Date: 20210114
  Serious: Yes (Hospitalization)
  Sender: FDA-Public Use
  Company Number: US-JNJFOC-20201118766

PATIENT
  Age: 71 Year
  Sex: Male
  Weight: 90.8 kg

DRUGS (2)
  1. MACITENTAN [Suspect]
     Active Substance: MACITENTAN
     Indication: PULMONARY ARTERIAL HYPERTENSION
     Route: 048
     Dates: start: 20200626
  2. OXYGEN. [Concomitant]
     Active Substance: OXYGEN
     Dosage: HE USES 12 LITERS OF OXYGEN

REACTIONS (3)
  - Dyspnoea [Not Recovered/Not Resolved]
  - Weight increased [Unknown]
  - Fluid retention [Unknown]

NARRATIVE: CASE EVENT DATE: 20201108
